FAERS Safety Report 5533657-2 (Version None)
Quarter: 2007Q4

REPORT INFORMATION
  Report Type: 
  Country: None (occurrence: None)
  Receive Date: 20071129
  Receipt Date: 20071113
  Transmission Date: 20080405
  Serious: Yes (Other)
  Sender: FDA-Public Use
  Company Number: S07-FRA-06073-01

PATIENT
  Age: 53 Year
  Sex: Female

DRUGS (5)
  1. ESCITALOPRAM [Suspect]
     Indication: DEPRESSION
     Dosage: 5 MG QD PO
     Route: 048
     Dates: start: 20070901, end: 20070101
  2. ESCITALOPRAM [Suspect]
     Indication: DEPRESSION
     Dosage: 10 MG ONCE PO
     Route: 048
     Dates: start: 20070101, end: 20070101
  3. BOTILINUM TOXIN (BOTULINUM TOXIN TYPE A) [Suspect]
     Indication: DYSTONIA
  4. LEXOMIL (BROMAZEPAM) [Concomitant]
  5. HERBALS WITH MINERALS/VITAMINS (NOS) [Concomitant]

REACTIONS (2)
  - DRUG INEFFECTIVE [None]
  - SUBILEUS [None]
